FAERS Safety Report 15922204 (Version 2)
Quarter: 2019Q1

REPORT INFORMATION
  Report Type: Spontaneous
  Country: JP (occurrence: JP)
  Receive Date: 20190206
  Receipt Date: 20190226
  Transmission Date: 20190417
  Serious: Yes (Other)
  Sender: FDA-Public Use
  Company Number: JP-ROCHE-2250060

PATIENT
  Age: 75 Year
  Sex: Female

DRUGS (12)
  1. ATELEC [Concomitant]
     Active Substance: CILNIDIPINE
     Route: 048
  2. BENET [Suspect]
     Active Substance: RISEDRONATE SODIUM
     Indication: PRODUCT USED FOR UNKNOWN INDICATION
     Route: 048
     Dates: start: 201302
  3. EZETIMIBE. [Concomitant]
     Active Substance: EZETIMIBE
     Route: 048
  4. ACINON (JAPAN) [Concomitant]
     Route: 049
  5. BELSOMRA [Concomitant]
     Active Substance: SUVOREXANT
     Route: 048
  6. LENDORMIN D [Concomitant]
     Active Substance: BROTIZOLAM
     Route: 048
  7. MOHRUS TAPE [Concomitant]
     Active Substance: KETOPROFEN
     Route: 061
  8. BONVIVA [Suspect]
     Active Substance: IBANDRONATE SODIUM
     Route: 042
     Dates: start: 201806, end: 201811
  9. MAINTATE [Concomitant]
     Active Substance: BISOPROLOL FUMARATE
  10. BONVIVA [Suspect]
     Active Substance: IBANDRONATE SODIUM
     Indication: OSTEOPOROSIS
     Route: 042
     Dates: start: 201804, end: 201804
  11. FOSAMAC [Suspect]
     Active Substance: ALENDRONATE SODIUM
     Indication: PRODUCT USED FOR UNKNOWN INDICATION
     Route: 048
     Dates: start: 2009
  12. DEPAS (JAPAN) [Concomitant]
     Route: 048

REACTIONS (2)
  - Osteonecrosis of jaw [Not Recovered/Not Resolved]
  - Tooth extraction [Unknown]

NARRATIVE: CASE EVENT DATE: 2018
